FAERS Safety Report 21978319 (Version 2)
Quarter: 2023Q1

REPORT INFORMATION
  Report Type: Report from Study
  Country: CN (occurrence: CN)
  Receive Date: 20230210
  Receipt Date: 20230210
  Transmission Date: 20230418
  Serious: Yes (Life-Threatening)
  Sender: FDA-Public Use
  Company Number: CN-DSRSG-DS8201AU305_23125010_000002

PATIENT
  Age: 54 Year
  Sex: Female
  Weight: 69.5 kg

DRUGS (13)
  1. FAM-TRASTUZUMAB DERUXTECAN-NXKI [Suspect]
     Active Substance: FAM-TRASTUZUMAB DERUXTECAN-NXKI
     Indication: HER2 positive breast cancer
     Dosage: 375.3 MG
     Route: 042
     Dates: start: 20220913, end: 20220913
  2. FAM-TRASTUZUMAB DERUXTECAN-NXKI [Suspect]
     Active Substance: FAM-TRASTUZUMAB DERUXTECAN-NXKI
     Dosage: 375.3 MG
     Route: 042
     Dates: start: 20221007, end: 20221007
  3. FAM-TRASTUZUMAB DERUXTECAN-NXKI [Suspect]
     Active Substance: FAM-TRASTUZUMAB DERUXTECAN-NXKI
     Dosage: 375.3 MG
     Route: 042
     Dates: start: 20221028, end: 20221028
  4. FAM-TRASTUZUMAB DERUXTECAN-NXKI [Suspect]
     Active Substance: FAM-TRASTUZUMAB DERUXTECAN-NXKI
     Dosage: 375.3 MG
     Route: 042
     Dates: start: 20221118, end: 20221118
  5. FAM-TRASTUZUMAB DERUXTECAN-NXKI [Suspect]
     Active Substance: FAM-TRASTUZUMAB DERUXTECAN-NXKI
     Dosage: 375.3 MG
     Route: 042
     Dates: start: 20221209, end: 20221209
  6. FAM-TRASTUZUMAB DERUXTECAN-NXKI [Suspect]
     Active Substance: FAM-TRASTUZUMAB DERUXTECAN-NXKI
     Dosage: 305.8 MG
     Route: 042
     Dates: start: 20230112, end: 20230112
  7. CEFUROXIME SODIUM [Concomitant]
     Active Substance: CEFUROXIME SODIUM
     Dosage: 1.5 GRAM
     Route: 042
     Dates: start: 20221208, end: 20221208
  8. OMEPRAZOLE SODIUM [Concomitant]
     Active Substance: OMEPRAZOLE SODIUM
     Dosage: 60 MILLIGRAM
     Route: 042
     Dates: start: 20221209, end: 20221209
  9. PALONOSETRON HYDROCHLORIDE [Concomitant]
     Active Substance: PALONOSETRON HYDROCHLORIDE
     Dosage: 0.25 MILLIGRAM
     Route: 042
     Dates: start: 20221209, end: 20221209
  10. GRANULOCYTE COLONY-STIMULATING FACTOR NOS [Concomitant]
     Active Substance: GRANULOCYTE COLONY-STIMULATING FACTOR NOS
     Dosage: 100 MICROGRAM
     Route: 058
     Dates: start: 20221208, end: 20221208
  11. EXEMESTANE [Concomitant]
     Active Substance: EXEMESTANE
     Dosage: 25 MILLIGRAM
     Route: 048
     Dates: start: 20220412
  12. CALCIUM CARBONATE\CHOLECALCIFEROL [Concomitant]
     Active Substance: CALCIUM CARBONATE\CHOLECALCIFEROL
     Dosage: 1 TABLET
     Route: 048
     Dates: start: 20220412
  13. GOSERELIN ACETATE [Concomitant]
     Active Substance: GOSERELIN ACETATE
     Dosage: 3.6 MILLIGRAM
     Route: 058
     Dates: start: 20220907

REACTIONS (1)
  - White blood cell count decreased [Not Recovered/Not Resolved]

NARRATIVE: CASE EVENT DATE: 20221219
